FAERS Safety Report 14688410 (Version 1)
Quarter: 2018Q1

REPORT INFORMATION
  Report Type: Spontaneous
  Country: JP (occurrence: JP)
  Receive Date: 20180328
  Receipt Date: 20180328
  Transmission Date: 20180509
  Serious: Yes (Life-Threatening, Hospitalization, Other)
  Sender: FDA-Public Use
  Company Number: JP-ELI_LILLY_AND_COMPANY-JP201803010539AA

PATIENT
  Age: 18 Month

DRUGS (12)
  1. SOLDEM [Concomitant]
     Active Substance: DEXTROSE\POTASSIUM CHLORIDE\SODIUM CHLORIDE\SODIUM LACTATE
     Route: 041
  2. HUMULIN R [Suspect]
     Active Substance: INSULIN HUMAN
     Indication: PRODUCT USED FOR UNKNOWN INDICATION
     Dosage: 10 IU, WITH GLUCOSE 25 % 200 ML (10 ML/HR)
     Route: 041
     Dates: start: 20180315, end: 20180316
  3. FAMOTIDINE. [Concomitant]
     Active Substance: FAMOTIDINE
     Dosage: UNK
     Route: 042
     Dates: start: 20180315, end: 20180318
  4. CEFMETAZOLE [Concomitant]
     Active Substance: CEFMETAZOLE
     Dosage: UNK
     Dates: end: 20180318
  5. HUMULIN R [Suspect]
     Active Substance: INSULIN HUMAN
     Dosage: 10 IU, WITH GLUCOSE 25 % 200 ML (10 ML/HR)
     Route: 041
     Dates: start: 20180316, end: 20180318
  6. BOSMIN                             /00003901/ [Concomitant]
     Active Substance: EPINEPHRINE
     Dosage: UNK
     Dates: end: 20180317
  7. PRECEDEX [Concomitant]
     Active Substance: DEXMEDETOMIDINE HYDROCHLORIDE
     Dosage: UNK
     Route: 042
     Dates: end: 20180317
  8. GLUCOSE [Concomitant]
     Active Substance: DEXTROSE
     Dosage: 200 ML WITH HUMAN INSULIN REGULAR 10 IU (10ML/HR)
     Route: 041
     Dates: start: 20180316, end: 20180318
  9. GLUCOSE [Concomitant]
     Active Substance: DEXTROSE
     Dosage: 200 ML, OTHER
     Route: 041
     Dates: start: 20180315, end: 20180316
  10. MIDAZOLAM [Concomitant]
     Active Substance: MIDAZOLAM HYDROCHLORIDE
     Dosage: UNK
     Route: 042
     Dates: start: 20180314, end: 20180318
  11. FUROSEMIDE. [Concomitant]
     Active Substance: FUROSEMIDE
     Dosage: UNK
     Dates: start: 20180313, end: 20180318
  12. CALCICOL [Concomitant]
     Active Substance: CALCIUM GLUCONATE
     Dosage: UNK
     Dates: start: 20180314, end: 20180317

REACTIONS (2)
  - Hypoglycaemia [Unknown]
  - Blood insulin increased [Unknown]

NARRATIVE: CASE EVENT DATE: 20180318
